FAERS Safety Report 26144869 (Version 1)
Quarter: 2025Q4

REPORT INFORMATION
  Report Type: Spontaneous
  Country: EU (occurrence: EU)
  Receive Date: 20251211
  Receipt Date: 20251211
  Transmission Date: 20260118
  Serious: Yes (Other)
  Sender: MYLAN
  Company Number: None

PATIENT
  Age: 93 Year
  Sex: Male

DRUGS (8)
  1. SERTRALINE [Interacting]
     Active Substance: SERTRALINE HYDROCHLORIDE
     Indication: Depression
     Dosage: 50 MILLIGRAM, QD (30 TABLETS, 1 PER DAY)
     Dates: start: 20230522
  2. SERTRALINE [Interacting]
     Active Substance: SERTRALINE HYDROCHLORIDE
     Dosage: 50 MILLIGRAM, QD (30 TABLETS, 1 PER DAY)
     Route: 048
     Dates: start: 20230522
  3. SERTRALINE [Interacting]
     Active Substance: SERTRALINE HYDROCHLORIDE
     Dosage: 50 MILLIGRAM, QD (30 TABLETS, 1 PER DAY)
     Route: 048
     Dates: start: 20230522
  4. SERTRALINE [Interacting]
     Active Substance: SERTRALINE HYDROCHLORIDE
     Dosage: 50 MILLIGRAM, QD (30 TABLETS, 1 PER DAY)
     Dates: start: 20230522
  5. CLOPIDOGREL [Interacting]
     Active Substance: CLOPIDOGREL BISULFATE
     Indication: Cerebrovascular accident
     Dosage: 75 MILLIGRAM, QD (50 TABLETS, 1 PER DAY)
     Dates: start: 20210118, end: 20251015
  6. CLOPIDOGREL [Interacting]
     Active Substance: CLOPIDOGREL BISULFATE
     Dosage: 75 MILLIGRAM, QD (50 TABLETS, 1 PER DAY)
     Route: 048
     Dates: start: 20210118, end: 20251015
  7. CLOPIDOGREL [Interacting]
     Active Substance: CLOPIDOGREL BISULFATE
     Dosage: 75 MILLIGRAM, QD (50 TABLETS, 1 PER DAY)
     Route: 048
     Dates: start: 20210118, end: 20251015
  8. CLOPIDOGREL [Interacting]
     Active Substance: CLOPIDOGREL BISULFATE
     Dosage: 75 MILLIGRAM, QD (50 TABLETS, 1 PER DAY)
     Dates: start: 20210118, end: 20251015

REACTIONS (1)
  - Traumatic subarachnoid haemorrhage [Recovering/Resolving]

NARRATIVE: CASE EVENT DATE: 20251015
